FAERS Safety Report 25668756 (Version 1)
Quarter: 2025Q3

REPORT INFORMATION
  Report Type: Spontaneous
  Country: US (occurrence: US)
  Receive Date: 20250812
  Receipt Date: 20250812
  Transmission Date: 20251020
  Serious: Yes (Hospitalization)
  Sender: Alora Pharma
  Company Number: US-AVION PHARMACEUTICALS-2025ALO02419

PATIENT
  Age: 48 Year
  Sex: Male

DRUGS (8)
  1. CARBIDOPA LEVODOPA [Suspect]
     Active Substance: CARBIDOPA\LEVODOPA
     Indication: Tremor
  2. CARBIDOPA LEVODOPA [Suspect]
     Active Substance: CARBIDOPA\LEVODOPA
     Indication: Parkinson^s disease
  3. CARBIDOPA LEVODOPA [Suspect]
     Active Substance: CARBIDOPA\LEVODOPA
     Dosage: 25MG/250 MG, EVERY 8 HOURS
  4. CARBIDOPA LEVODOPA [Suspect]
     Active Substance: CARBIDOPA\LEVODOPA
     Dosage: 25MG/250 MG, EVERY 6 HOURS
  5. HEROIN [Concomitant]
     Active Substance: DIAMORPHINE
     Dosage: UNK, 1X/DAY
     Route: 045
  6. HEROIN [Concomitant]
     Active Substance: DIAMORPHINE
     Dosage: UNK, 1X/DAY
     Route: 042
  7. FENTANYL [Concomitant]
     Active Substance: FENTANYL
     Dosage: UNK, 1X/DAY
     Route: 045
  8. FENTANYL [Concomitant]
     Active Substance: FENTANYL
     Dosage: UNK, 1X/DAY
     Route: 042

REACTIONS (2)
  - Dopamine dysregulation syndrome [Not Recovered/Not Resolved]
  - Drug abuse [Not Recovered/Not Resolved]
